FAERS Safety Report 4423097-1 (Version None)
Quarter: 2004Q3

REPORT INFORMATION
  Report Type: 
  Country: None (occurrence: None)
  Receive Date: 20040805
  Receipt Date: 20040727
  Transmission Date: 20050211
  Serious: Yes (Hospitalization)
  Sender: FDA-Public Use
  Company Number: US-2004-025468

PATIENT
  Age: 44 Year
  Sex: Female

DRUGS (6)
  1. BETASERON [Suspect]
     Indication: MULTIPLE SCLEROSIS
     Dosage: 8 MIU, EVERY 2D, SUBCUTANEOUS
     Route: 058
     Dates: start: 20040130
  2. COUMADIN [Suspect]
     Indication: CARDIAC DISORDER
     Dosage: 2.5 MG, 1X/DAY, ORAL
     Route: 048
  3. DILANTIN [Concomitant]
  4. ALPRAZOLAM [Concomitant]
  5. NEURONTIN [Concomitant]
  6. AMBIEN [Concomitant]

REACTIONS (7)
  - ASTHENIA [None]
  - CEREBROVASCULAR ACCIDENT [None]
  - CONDITION AGGRAVATED [None]
  - HEADACHE [None]
  - HYPOAESTHESIA [None]
  - MULTIPLE SCLEROSIS [None]
  - VISUAL ACUITY REDUCED [None]
